FAERS Safety Report 9815897 (Version 1)
Quarter: 2014Q1

REPORT INFORMATION
  Report Type: Spontaneous
  Country: US (occurrence: US)
  Receive Date: 20140114
  Receipt Date: 20140114
  Transmission Date: 20141002
  Serious: No
  Sender: FDA-Public Use
  Company Number: US-PFIZER INC-2014008986

PATIENT
  Age: 5 Year
  Sex: Female

DRUGS (2)
  1. QUILLIVANT XR [Suspect]
     Indication: ATTENTION DEFICIT/HYPERACTIVITY DISORDER
     Dosage: 20 MG, DAILY
     Route: 048
     Dates: start: 201310, end: 20140103
  2. ABILIFY [Concomitant]
     Dosage: UNK

REACTIONS (2)
  - Dyskinesia [Unknown]
  - Off label use [Unknown]
